FAERS Safety Report 8716406 (Version 5)
Quarter: 2013Q1

REPORT INFORMATION
  Report Type: Spontaneous
  Country: US (occurrence: US)
  Receive Date: 20120810
  Receipt Date: 20130125
  Transmission Date: 20140127
  Serious: Yes (Other)
  Sender: FDA-Public Use
  Company Number: US-009507513-1207USA010117

PATIENT
  Sex: Male

DRUGS (4)
  1. RIBAVIRIN [Suspect]
     Indication: HEPATITIS C
     Dosage: UNK
     Route: 048
     Dates: start: 20120207, end: 20130101
  2. VICTRELIS [Suspect]
     Indication: HEPATITIS C
     Dosage: UNK
     Route: 048
     Dates: start: 20120313, end: 20121112
  3. PEG-INTRON [Suspect]
     Indication: HEPATITIS C
     Dosage: UNK, REDIPEN
     Dates: start: 20120724, end: 20130101
  4. PEGASYS [Suspect]
     Indication: HEPATITIS C
     Dosage: UNK
     Dates: start: 20120207, end: 20120717

REACTIONS (47)
  - Muscle atrophy [Not Recovered/Not Resolved]
  - Coordination abnormal [Unknown]
  - Injection site bruising [Unknown]
  - Injection site erythema [Unknown]
  - Hepatic pain [Unknown]
  - Injection site discolouration [Unknown]
  - Injection site erythema [Unknown]
  - White blood cell count decreased [Recovered/Resolved]
  - Injection site discolouration [Unknown]
  - Pruritus [Unknown]
  - Dizziness [Unknown]
  - Fatigue [Unknown]
  - Dysgeusia [Not Recovered/Not Resolved]
  - Fatigue [Unknown]
  - Fatigue [Unknown]
  - Injection site erythema [Unknown]
  - Blood glucose decreased [Unknown]
  - Blood cholesterol increased [Not Recovered/Not Resolved]
  - White blood cell count decreased [Unknown]
  - Fatigue [Unknown]
  - Injection site erythema [Unknown]
  - Red blood cell count decreased [Unknown]
  - Dysgeusia [Unknown]
  - Dizziness [Unknown]
  - Red blood cell count decreased [Unknown]
  - White blood cell count decreased [Unknown]
  - White blood cell count decreased [Unknown]
  - Malaise [Unknown]
  - Decreased appetite [Unknown]
  - Anaemia [Unknown]
  - White blood cell count decreased [Unknown]
  - Fatigue [Unknown]
  - Blood glucose decreased [Unknown]
  - Asthenia [Unknown]
  - Fatigue [Unknown]
  - Anaemia [Unknown]
  - Anaemia [Unknown]
  - White blood cell count decreased [Unknown]
  - Thrombocytopenia [Unknown]
  - Drug ineffective [Unknown]
  - Fatigue [Unknown]
  - Memory impairment [Unknown]
  - Laceration [Unknown]
  - Anaemia [Unknown]
  - Leukopenia [Unknown]
  - Thrombocytopenia [Unknown]
  - Drug ineffective [Unknown]
